FAERS Safety Report 19301107 (Version 1)
Quarter: 2021Q2

REPORT INFORMATION
  Report Type: Spontaneous
  Country: US (occurrence: US)
  Receive Date: 20210525
  Receipt Date: 20210525
  Transmission Date: 20210717
  Serious: Yes (Life-Threatening, Disabling, Other)
  Sender: FDA-Public Use
  Company Number: None

PATIENT
  Age: 17 Year
  Sex: Male
  Weight: 67.5 kg

DRUGS (9)
  1. METHYL B COMPLEX [Concomitant]
  2. UBIQUINOL [Concomitant]
     Active Substance: UBIQUINOL
  3. MITOCORE [Concomitant]
  4. MEGAQUINONE K2?7 [Concomitant]
  5. SINGULAIR [Suspect]
     Active Substance: MONTELUKAST SODIUM
     Indication: ASTHMA EXERCISE INDUCED
     Dosage: ?          QUANTITY:1 TABLET(S);?
     Route: 048
  6. LITHIUM. [Concomitant]
     Active Substance: LITHIUM
  7. GABA [Concomitant]
     Active Substance: HOMEOPATHICS
  8. D?HIST [Concomitant]
  9. VIT D [Concomitant]
     Active Substance: VITAMIN D NOS

REACTIONS (20)
  - Suicidal ideation [None]
  - Amnesia [None]
  - Hallucination, auditory [None]
  - Feeling abnormal [None]
  - Depression [None]
  - Dyspepsia [None]
  - Nightmare [None]
  - Suicide attempt [None]
  - Blood bilirubin increased [None]
  - Social anxiety disorder [None]
  - Incontinence [None]
  - Palpitations [None]
  - Dizziness [None]
  - Oropharyngeal pain [None]
  - Contusion [None]
  - Neurotransmitter level altered [None]
  - Keratosis pilaris [None]
  - Sinusitis [None]
  - Ear infection [None]
  - Hypovitaminosis [None]

NARRATIVE: CASE EVENT DATE: 20180215
